FAERS Safety Report 23349717 (Version 1)
Quarter: 2023Q4

REPORT INFORMATION
  Report Type: Spontaneous
  Country: GR (occurrence: GR)
  Receive Date: 20231229
  Receipt Date: 20231229
  Transmission Date: 20240110
  Serious: Yes (Hospitalization, Other)
  Sender: FDA-Public Use
  Company Number: GR-BoehringerIngelheim-2023-BI-277050

PATIENT
  Age: 72 Year
  Sex: Male

DRUGS (2)
  1. OFEV [Suspect]
     Active Substance: NINTEDANIB
     Indication: Idiopathic pulmonary fibrosis
  2. OFEV [Suspect]
     Active Substance: NINTEDANIB

REACTIONS (11)
  - Angina pectoris [Recovered/Resolved]
  - Dysarthria [Unknown]
  - Dizziness [Unknown]
  - Cerebrovascular accident [Unknown]
  - Cerebral small vessel ischaemic disease [Unknown]
  - Blood creatinine decreased [Recovered/Resolved]
  - Glomerular filtration rate abnormal [Recovered/Resolved]
  - Diarrhoea [Recovered/Resolved]
  - Diarrhoea [Recovered/Resolved]
  - Weight decreased [Recovered/Resolved]
  - Diarrhoea [Recovered/Resolved]

NARRATIVE: CASE EVENT DATE: 20200701
